FAERS Safety Report 5072677-1 (Version None)
Quarter: 2006Q3

REPORT INFORMATION
  Report Type: 
  Country: None (occurrence: None)
  Receive Date: 20060807
  Receipt Date: 20060601
  Transmission Date: 20061208
  Serious: Yes (Hospitalization)
  Sender: FDA-Public Use
  Company Number: AU-ROCHE-450225

PATIENT
  Age: 33 Year
  Sex: Male
  Weight: 68.1 kg

DRUGS (3)
  1. PEG-INTERFERON ALFA 2A (RO 25-8310) [Suspect]
     Route: 058
     Dates: start: 20060426, end: 20060522
  2. RIBAVIRIN [Suspect]
     Route: 048
     Dates: start: 20060426, end: 20060528
  3. BUPRENORPHINE HCL [Concomitant]
     Dates: start: 20030615

REACTIONS (1)
  - COGNITIVE DISORDER [None]
